FAERS Safety Report 24772146 (Version 1)
Quarter: 2024Q4

REPORT INFORMATION
  Report Type: Spontaneous
  Country: US (occurrence: US)
  Receive Date: 20241224
  Receipt Date: 20241224
  Transmission Date: 20250115
  Serious: No
  Sender: SANOFI AVENTIS
  Company Number: US-SA-2024SA378336

PATIENT
  Age: 32 Year
  Sex: Female
  Weight: 157.73 kg

DRUGS (1)
  1. DUPIXENT [Suspect]
     Active Substance: DUPILUMAB
     Indication: Nasal polyps
     Dosage: 300 MG, QOW
     Route: 058

REACTIONS (6)
  - Pain [Recovering/Resolving]
  - Productive cough [Recovering/Resolving]
  - Respiratory tract congestion [Recovering/Resolving]
  - Sinus congestion [Recovering/Resolving]
  - Pyrexia [Recovering/Resolving]
  - Inappropriate schedule of product administration [Unknown]

NARRATIVE: CASE EVENT DATE: 20241101
